FAERS Safety Report 8152941-X (Version None)
Quarter: 2012Q1

REPORT INFORMATION
  Report Type: 
  Country: None (occurrence: None)
  Receive Date: 20120215
  Receipt Date: 20120130
  Transmission Date: 20120608
  Serious: No
  Sender: FDA-Public Use
  Company Number: OPGN20120001

PATIENT
  Age: 40 Year
  Sex: Male
  Weight: 119.7496 kg

DRUGS (4)
  1. OXYMORPHONE HYDROCHLORIDE [Suspect]
     Indication: BREAKTHROUGH PAIN
     Dosage: 10 MG, ORAL
     Route: 048
  2. OXYMORPHONE HYDROCHLORIDE [Suspect]
     Indication: BACK PAIN
     Dosage: 10 MG, ORAL
     Route: 048
  3. OPANA ER [Suspect]
     Indication: BACK PAIN
     Dosage: 120 MG, 3 IN 1 D, ORAL
     Route: 048
  4. OPANA ER [Suspect]
     Indication: NERVE INJURY
     Dosage: 120 MG, 3 IN 1 D, ORAL
     Route: 048

REACTIONS (2)
  - NO THERAPEUTIC RESPONSE [None]
  - THYROID NEOPLASM [None]
